FAERS Safety Report 8798680 (Version 1)
Quarter: 2012Q4

REPORT INFORMATION
  Report Type: 
  Country: US (occurrence: US)
  Receive Date: 20120920
  Receipt Date: 20120920
  Transmission Date: 20130627
  Serious: Yes (Hospitalization, Disabling, Other)
  Sender: FDA-Public Use
  Company Number: US-009507513-1203USA03356

PATIENT

DRUGS (3)
  1. FOSAMAX [Suspect]
     Indication: OSTEOPOROSIS
     Dosage: 70 mg, QW
     Route: 048
     Dates: start: 20030617, end: 20110913
  2. FOSAMAX [Suspect]
     Indication: OSTEOPOROSIS
     Dosage: 70 mg, UNK
     Route: 048
     Dates: start: 200404, end: 201104
  3. CALTRATE WITH VITAMIN D [Concomitant]
     Dosage: 600 mg, bid

REACTIONS (32)
  - Intramedullary rod insertion [Unknown]
  - Femur fracture [Unknown]
  - Osteoporosis [Unknown]
  - Stress fracture [Unknown]
  - Low turnover osteopathy [Unknown]
  - Femur fracture [Unknown]
  - Femur fracture [Unknown]
  - Tooth disorder [Unknown]
  - Device failure [Unknown]
  - Impaired healing [Unknown]
  - Pain in extremity [Unknown]
  - Vitamin D deficiency [Unknown]
  - Hypertension [Unknown]
  - Blood cholesterol increased [Unknown]
  - Foot fracture [Unknown]
  - Foot fracture [Unknown]
  - Foot fracture [Unknown]
  - Rib fracture [Unknown]
  - Back pain [Unknown]
  - Nervous system disorder [Unknown]
  - Onychomycosis [Unknown]
  - Vaginal haemorrhage [Unknown]
  - Myopia [Unknown]
  - Astigmatism [Unknown]
  - Presbyopia [Unknown]
  - Pinguecula [Unknown]
  - Breast mass [Unknown]
  - Uterine disorder [Unknown]
  - Neuropathy peripheral [Unknown]
  - Hyperlipidaemia [Unknown]
  - Morton^s neuroma [Unknown]
  - Osteopenia [Unknown]
